FAERS Safety Report 7479898-9 (Version None)
Quarter: 2011Q2

REPORT INFORMATION
  Report Type: 
  Country: None (occurrence: None)
  Receive Date: 20110516
  Receipt Date: 20110512
  Transmission Date: 20111010
  Serious: Yes (Hospitalization)
  Sender: FDA-Public Use
  Company Number: BE-BRISTOL-MYERS SQUIBB COMPANY-15660988

PATIENT
  Age: 47 Year
  Sex: Female

DRUGS (7)
  1. DOMINAL [Suspect]
     Dosage: 1ST TIME TAKEN 14 HOURS BEFORE EVENT
     Dates: start: 20110301, end: 20110415
  2. LORAZEPAM [Suspect]
     Dosage: 1DF=4X1/2 TABLET. 4*0.5MG STRENGTH:1MG
     Dates: start: 20110301, end: 20110415
  3. PANTOPRAZOLE [Concomitant]
     Dates: start: 20110201
  4. PANTOMED [Concomitant]
     Dosage: 2X40MG. SINCE 2 WEEKS
  5. ABILIFY [Suspect]
     Indication: BIPOLAR DISORDER
     Dosage: ALSO TAKEN 5MG/DAY
     Route: 048
     Dates: start: 20110302
  6. SIPRALEXA [Concomitant]
     Dosage: 1DF=2 TABLETS IN THE MORNING.
  7. ABILIFY [Suspect]
     Indication: HYPOMANIA
     Dosage: ALSO TAKEN 5MG/DAY
     Route: 048
     Dates: start: 20110302

REACTIONS (4)
  - ANOSMIA [None]
  - FALL [None]
  - LOSS OF CONSCIOUSNESS [None]
  - SKULL FRACTURE [None]
